FAERS Safety Report 20001239 (Version 1)
Quarter: 2021Q4

REPORT INFORMATION
  Report Type: Spontaneous
  Country: US (occurrence: US)
  Receive Date: 20211026
  Receipt Date: 20211026
  Transmission Date: 20220303
  Serious: Yes (Hospitalization)
  Sender: FDA-Public Use
  Company Number: None

PATIENT
  Sex: Female
  Weight: 56.6 kg

DRUGS (5)
  1. CYCLOPHOSPHAMIDE [Suspect]
     Active Substance: CYCLOPHOSPHAMIDE
  2. DEXAMETHASONE [Concomitant]
     Active Substance: DEXAMETHASONE
  3. MERCAPTOPURINE [Concomitant]
     Active Substance: MERCAPTOPURINE
  4. METHOTREXATE [Concomitant]
     Active Substance: METHOTREXATE
  5. VINCRISTINE SULFATE [Concomitant]
     Active Substance: VINCRISTINE SULFATE

REACTIONS (15)
  - Pyrexia [None]
  - Diarrhoea [None]
  - Fatigue [None]
  - Pain [None]
  - Atelectasis [None]
  - Myelosuppression [None]
  - Cholecystitis acute [None]
  - Enteritis [None]
  - Colitis [None]
  - Neutropenic colitis [None]
  - Abdominal pain [None]
  - Blood culture positive [None]
  - Enterobacter test positive [None]
  - Escherichia test positive [None]
  - Therapy interrupted [None]

NARRATIVE: CASE EVENT DATE: 20211015
